FAERS Safety Report 9790811 (Version 1)
Quarter: 2013Q4

REPORT INFORMATION
  Report Type: Spontaneous
  Country: CN (occurrence: CN)
  Receive Date: 20131231
  Receipt Date: 20131231
  Transmission Date: 20140711
  Serious: Yes (Hospitalization)
  Sender: FDA-Public Use
  Company Number: PHHY2013CN152740

PATIENT
  Age: 48 Year
  Sex: Male

DRUGS (2)
  1. OCTREOTIDE [Suspect]
     Indication: PANCREATIC LEAK
  2. ANTIBIOTICS [Suspect]

REACTIONS (3)
  - Bacterial infection [Recovered/Resolved]
  - Pancreatic leak [Recovered/Resolved]
  - Drug ineffective [Unknown]
